FAERS Safety Report 13085250 (Version 1)
Quarter: 2017Q1

REPORT INFORMATION
  Report Type: Spontaneous
  Country: US (occurrence: US)
  Receive Date: 20170104
  Receipt Date: 20170104
  Transmission Date: 20170428
  Serious: No
  Sender: FDA-Public Use
  Company Number: US-009507513-1701USA001505

PATIENT
  Sex: Female

DRUGS (1)
  1. ZOCOR [Suspect]
     Active Substance: SIMVASTATIN
     Dosage: 40 MG, UNK
     Route: 065

REACTIONS (4)
  - Upper limb fracture [Unknown]
  - Myalgia [Unknown]
  - Movement disorder [Unknown]
  - Drug hypersensitivity [Unknown]
